FAERS Safety Report 8198749-0 (Version None)
Quarter: 2012Q1

REPORT INFORMATION
  Report Type: 
  Country: None (occurrence: None)
  Receive Date: 20120309
  Receipt Date: 20120307
  Transmission Date: 20120608
  Serious: Yes (Death, Hospitalization)
  Sender: FDA-Public Use
  Company Number: CR-ROCHE-1037677

PATIENT
  Sex: Male

DRUGS (1)
  1. MABTHERA [Suspect]
     Indication: NON-HODGKIN'S LYMPHOMA
     Route: 042
     Dates: start: 20110829, end: 20111201

REACTIONS (5)
  - DISORIENTATION [None]
  - NON-HODGKIN'S LYMPHOMA [None]
  - TREMOR [None]
  - DISEASE PROGRESSION [None]
  - FALL [None]
